FAERS Safety Report 15710655 (Version 5)
Quarter: 2025Q2

REPORT INFORMATION
  Report Type: Report from Study
  Country: US (occurrence: US)
  Receive Date: 20181211
  Receipt Date: 20250611
  Transmission Date: 20250716
  Serious: No
  Sender: JAZZ
  Company Number: US-JAZZ-2018-US-017658

PATIENT
  Sex: Female

DRUGS (5)
  1. XYREM [Suspect]
     Active Substance: SODIUM OXYBATE
     Indication: Narcolepsy
     Dosage: 2.25 G, BID
     Route: 048
     Dates: start: 201702, end: 201810
  2. XYREM [Suspect]
     Active Substance: SODIUM OXYBATE
     Indication: Cataplexy
     Dosage: 2.25 G, QD
     Route: 048
     Dates: start: 201810
  3. XYREM [Suspect]
     Active Substance: SODIUM OXYBATE
     Indication: Somnolence
  4. PREDNISONE [Suspect]
     Active Substance: PREDNISONE
     Indication: Product used for unknown indication
     Dates: start: 201706
  5. IBUPROFEN [Concomitant]
     Active Substance: IBUPROFEN
     Indication: Product used for unknown indication
     Dates: start: 201702

REACTIONS (11)
  - Laryngitis [Unknown]
  - Sinusitis [Recovered/Resolved]
  - Bronchitis [Recovered/Resolved]
  - Inflammation [Not Recovered/Not Resolved]
  - Swelling [Unknown]
  - Chest discomfort [Unknown]
  - Nasopharyngitis [Unknown]
  - Dyspnoea [Recovered/Resolved]
  - Anxiety [Unknown]
  - Pre-existing condition improved [Unknown]
  - Therapeutic response unexpected [Unknown]

NARRATIVE: CASE EVENT DATE: 20170101
